FAERS Safety Report 18620960 (Version 1)
Quarter: 2020Q4

REPORT INFORMATION
  Report Type: Spontaneous
  Country: GB (occurrence: GB)
  Receive Date: 20201215
  Receipt Date: 20201215
  Transmission Date: 20210114
  Serious: Yes (Other)
  Sender: FDA-Public Use
  Company Number: GB-ALLERGAN-2048324US

PATIENT
  Sex: Male
  Weight: 70 kg

DRUGS (3)
  1. IBUPROFEN. [Concomitant]
     Active Substance: IBUPROFEN
     Route: 065
  2. CITALOPRAM HYDROBROMIDE - BP [Suspect]
     Active Substance: CITALOPRAM HYDROBROMIDE
     Indication: ANXIETY
     Route: 048
     Dates: start: 20131001
  3. CHAMPIX [Suspect]
     Active Substance: VARENICLINE TARTRATE
     Indication: NICOTINE DEPENDENCE
     Route: 048
     Dates: start: 20201001

REACTIONS (3)
  - Off label use [Unknown]
  - Mood swings [Recovered/Resolved with Sequelae]
  - Self-injurious ideation [Recovered/Resolved with Sequelae]

NARRATIVE: CASE EVENT DATE: 20201001
